FAERS Safety Report 16920843 (Version 3)
Quarter: 2019Q4

REPORT INFORMATION
  Report Type: Report from Study
  Country: US (occurrence: US)
  Receive Date: 20191015
  Receipt Date: 20191113
  Transmission Date: 20200122
  Serious: Yes (Hospitalization)
  Sender: FDA-Public Use
  Company Number: US-AMGEN-USACT2019169206

PATIENT
  Age: 53 Year
  Sex: Male
  Weight: 69.03 kg

DRUGS (3)
  1. CARFILZOMIB [Suspect]
     Active Substance: CARFILZOMIB
     Indication: PLASMA CELL MYELOMA
     Dosage: 20 MILLIGRAM/SQ. METER, PER CHEMO REGIM
     Route: 065
  2. CARFILZOMIB [Suspect]
     Active Substance: CARFILZOMIB
     Dosage: 56 MILLIGRAM/SQ. METER, PER CHEMO REGIM
     Route: 065
  3. CARFILZOMIB [Suspect]
     Active Substance: CARFILZOMIB
     Dosage: UNK UNK, PER CHEMO REGIM
     Route: 065
     Dates: start: 20190320

REACTIONS (2)
  - Dyspnoea [Unknown]
  - Generalised oedema [Unknown]

NARRATIVE: CASE EVENT DATE: 20191008
